FAERS Safety Report 8438947-1 (Version None)
Quarter: 2012Q2

REPORT INFORMATION
  Report Type: 
  Country: None (occurrence: None)
  Receive Date: 20120323
  Receipt Date: 20110623
  Transmission Date: 20120825
  Serious: Yes (Other)
  Sender: FDA-Public Use
  Company Number: 163-21880-11053493

PATIENT
  Age: 72 Year
  Sex: Female
  Weight: 59.4212 kg

DRUGS (11)
  1. DIGOXIN [Concomitant]
  2. SIMVASTATIN [Concomitant]
  3. GLIPIZIDE [Concomitant]
  4. METFFORMIN HYDROCHLORIDE [Concomitant]
  5. LATANOPROST [Concomitant]
  6. AMLODIPINE [Concomitant]
  7. WARFARIN SODIUM [Concomitant]
  8. ZOMETA [Concomitant]
  9. LISINOPRIL [Concomitant]
  10. REVLIMID [Suspect]
     Indication: MULTIPLE MYELOMA
     Dosage: 15 MG, DAILY X 21 DAYS/OFF 7 DAYS, PO
     Route: 048
     Dates: start: 20101019
  11. LEVOTHYROXIN (LEVOTHYROXIN) [Concomitant]

REACTIONS (3)
  - HAEMOGLOBIN DECREASED [None]
  - ANAEMIA [None]
  - HAEMATOCRIT DECREASED [None]
